FAERS Safety Report 10090034 (Version 2)
Quarter: 2014Q2

REPORT INFORMATION
  Report Type: Spontaneous
  Country: EC (occurrence: EC)
  Receive Date: 20140421
  Receipt Date: 20140421
  Transmission Date: 20141212
  Serious: Yes (Other)
  Sender: FDA-Public Use
  Company Number: EC-ROCHE-1381363

PATIENT
  Age: 68 Year
  Sex: Male

DRUGS (1)
  1. ZELBORAF [Suspect]
     Indication: MALIGNANT MELANOMA
     Route: 048
     Dates: start: 20140318, end: 20140407

REACTIONS (3)
  - Haematuria [Recovered/Resolved]
  - Arthralgia [Unknown]
  - Oedema peripheral [Unknown]
